FAERS Safety Report 13952036 (Version 1)
Quarter: 2017Q3

REPORT INFORMATION
  Report Type: Spontaneous
  Country: PR (occurrence: US)
  Receive Date: 20170910
  Receipt Date: 20170910
  Transmission Date: 20171128
  Serious: No
  Sender: FDA-Public Use
  Company Number: PR-ASTRAZENECA-2017SE89746

PATIENT

DRUGS (2)
  1. ADALAT [Concomitant]
     Active Substance: NIFEDIPINE
     Route: 065
  2. ONGLYZA [Suspect]
     Active Substance: SAXAGLIPTIN HYDROCHLORIDE
     Indication: TYPE 2 DIABETES MELLITUS
     Dosage: DAILY
     Route: 048

REACTIONS (1)
  - Tinnitus [Unknown]
